FAERS Safety Report 12755631 (Version 4)
Quarter: 2016Q4

REPORT INFORMATION
  Report Type: Spontaneous
  Country: JP (occurrence: JP)
  Receive Date: 20160916
  Receipt Date: 20161103
  Transmission Date: 20170207
  Serious: Yes (Hospitalization)
  Sender: FDA-Public Use
  Company Number: JP-ARBOR PHARMACEUTICALS, LLC-JP-2016ARB001581

PATIENT
  Age: 37 Year
  Sex: Male

DRUGS (2)
  1. GLIADEL [Suspect]
     Active Substance: CARMUSTINE
     Dosage: 7.7 MG, 3 TOTAL
     Dates: start: 201609
  2. GLIADEL [Suspect]
     Active Substance: CARMUSTINE
     Indication: GLIOBLASTOMA
     Dosage: 7.7 MG, 8 TOTAL (TOTAL DOSE 61.6 MG)
     Dates: start: 20160829, end: 201609

REACTIONS (2)
  - Depressed level of consciousness [Recovered/Resolved]
  - Pneumocephalus [Recovered/Resolved]

NARRATIVE: CASE EVENT DATE: 20160903
